FAERS Safety Report 7301283-0 (Version None)
Quarter: 2011Q1

REPORT INFORMATION
  Report Type: 
  Country: None (occurrence: None)
  Receive Date: 20110218
  Receipt Date: 20110207
  Transmission Date: 20110831
  Serious: Yes (Other)
  Sender: FDA-Public Use
  Company Number: SE-SANOFI-AVENTIS-2011SA000674

PATIENT
  Age: 69 Year
  Sex: Male

DRUGS (11)
  1. ALLOPURINOL [Concomitant]
     Indication: GOUT
  2. ETALPHA [Concomitant]
  3. METOPROLOL [Concomitant]
  4. ENALAPRIL [Concomitant]
     Indication: HYPERTENSION
  5. METOPROLOL [Concomitant]
     Indication: ATRIAL FIBRILLATION
  6. PAROXETINE HCL [Concomitant]
  7. MULTAQ [Suspect]
     Indication: ATRIAL FIBRILLATION
     Route: 048
     Dates: start: 20101230, end: 20110105
  8. SIMVASTATIN [Concomitant]
  9. CETIRIZINE [Concomitant]
  10. WARAN [Concomitant]
     Indication: ATRIAL FIBRILLATION
  11. TERRACORTRIL MED POLYMYXIN B [Concomitant]

REACTIONS (3)
  - RENAL FAILURE [None]
  - BLOOD CREATININE INCREASED [None]
  - GLOMERULAR FILTRATION RATE DECREASED [None]
